FAERS Safety Report 10956678 (Version 1)
Quarter: 2015Q1

REPORT INFORMATION
  Report Type: Spontaneous
  Country: US (occurrence: None)
  Receive Date: 20150325
  Receipt Date: 20150325
  Transmission Date: 20150721
  Serious: No
  Sender: FDA-Public Use
  Company Number: None

PATIENT
  Age: 59 Year
  Sex: Female

DRUGS (1)
  1. ESOMEPRAZOLE DR 40MG CAP 40MG TEVA [Suspect]
     Active Substance: ESOMEPRAZOLE
     Dosage: 1 CAP BEFORE BREAKFAST
     Route: 048
     Dates: start: 20150310, end: 20150310

REACTIONS (2)
  - Product substitution issue [None]
  - Abdominal pain upper [None]

NARRATIVE: CASE EVENT DATE: 20150310
